FAERS Safety Report 7717661-1 (Version None)
Quarter: 2011Q3

REPORT INFORMATION
  Report Type: 
  Country: None (occurrence: None)
  Receive Date: 20110830
  Receipt Date: 20110829
  Transmission Date: 20111222
  Serious: Yes (Other)
  Sender: FDA-Public Use
  Company Number: US-BRISTOL-MYERS SQUIBB COMPANY-15674245

PATIENT
  Age: 50 Year
  Sex: Female

DRUGS (1)
  1. ONGLYZA [Suspect]
     Route: 048

REACTIONS (3)
  - ANAEMIA [None]
  - PANCREATITIS [None]
  - COLON CANCER [None]
